FAERS Safety Report 8019620-0 (Version None)
Quarter: 2012Q1

REPORT INFORMATION
  Report Type: 
  Country: None (occurrence: None)
  Receive Date: 20120103
  Receipt Date: 20111230
  Transmission Date: 20120608
  Serious: Yes (Other)
  Sender: FDA-Public Use
  Company Number: CA-GLAXOSMITHKLINE-A0933002A

PATIENT
  Sex: Female
  Weight: 63.6 kg

DRUGS (4)
  1. MORPHINE [Concomitant]
     Dosage: 30MG THREE TIMES PER DAY
  2. INSULIN [Concomitant]
  3. ADVAIR DISKUS 100/50 [Suspect]
     Indication: ASTHMA
     Dosage: 1PUFF TWICE PER DAY
     Route: 055
     Dates: start: 19830101
  4. VENTOLIN [Concomitant]

REACTIONS (12)
  - DYSPNOEA [None]
  - DIARRHOEA [None]
  - DISCOMFORT [None]
  - WHEEZING [None]
  - CHEST DISCOMFORT [None]
  - DYSPHONIA [None]
  - GASTRIC DISORDER [None]
  - ASTHMA [None]
  - COUGH [None]
  - ANXIETY [None]
  - DIZZINESS [None]
  - PALLOR [None]
